FAERS Safety Report 10199450 (Version 1)
Quarter: 2014Q2

REPORT INFORMATION
  Report Type: Spontaneous
  Country: US (occurrence: None)
  Receive Date: 20140523
  Receipt Date: 20140523
  Transmission Date: 20141212
  Serious: Yes (Other)
  Sender: FDA-Public Use
  Company Number: None

PATIENT
  Age: 38 Year
  Sex: Male
  Weight: 70.31 kg

DRUGS (7)
  1. CLINDAMYCIN HCL [Suspect]
     Indication: SINUSITIS
     Route: 048
     Dates: start: 20140427, end: 20140503
  2. TRADER JOE^S MEN^S FORMULA VITAMINS [Concomitant]
  3. TRADER JOE^S JOINT SUPPORT WITH GLUCOSAMINE MDM AND CHONDROITIN [Concomitant]
  4. TRADER JOE^S ACIDOPHILUS AND PROBIOTIC COMPLEX [Concomitant]
  5. IBUPROFEN [Concomitant]
  6. PSEUDOEPHEDRINE HYDROCHLORIDE [Concomitant]
  7. SALINE [Concomitant]

REACTIONS (4)
  - Nausea [None]
  - Arthropathy [None]
  - Joint stiffness [None]
  - Discomfort [None]
